FAERS Safety Report 7569502-3 (Version None)
Quarter: 2011Q2

REPORT INFORMATION
  Report Type: 
  Country: None (occurrence: None)
  Receive Date: 20110624
  Receipt Date: 20110613
  Transmission Date: 20111010
  Serious: No
  Sender: FDA-Public Use
  Company Number: US-BIOGENIDEC-2011BI021706

PATIENT
  Sex: Female

DRUGS (1)
  1. AVONEX [Suspect]
     Indication: MULTIPLE SCLEROSIS
     Route: 030

REACTIONS (5)
  - MULTIPLE SCLEROSIS [None]
  - JC VIRUS TEST POSITIVE [None]
  - ASTHMA [None]
  - HYPOAESTHESIA [None]
  - CANDIDIASIS [None]
